FAERS Safety Report 4280660-9 (Version None)
Quarter: 2004Q1

REPORT INFORMATION
  Report Type: 
  Country: None (occurrence: None)
  Receive Date: 20040127
  Receipt Date: 20040115
  Transmission Date: 20041129
  Serious: Yes (Death, Hospitalization)
  Sender: FDA-Public Use
  Company Number: DE-JNJFOC-20031005211

PATIENT
  Age: 60 Year
  Sex: Male
  Weight: 60.5 kg

DRUGS (7)
  1. HALDOL [Suspect]
     Indication: HALLUCINATION
     Dosage: 10 MG, IN 1 DAY, ORAL
     Route: 048
     Dates: start: 20031021, end: 20031023
  2. HALDOL [Suspect]
     Indication: HALLUCINATION
     Dosage: 10 MG, IN 1 DAY, ORAL
     Route: 048
     Dates: start: 20031023
  3. OXAZEPAM [Concomitant]
  4. DISTRANEURIN (CLOMETHIAZOLE EDISILATE) [Concomitant]
  5. CEFUROXIM (CEFUROXIME) [Concomitant]
  6. CIPROFLOXACIN [Concomitant]
  7. BELOC ZOK (METOPROLOL SUCCINATE) TABLETS [Concomitant]

REACTIONS (7)
  - BRONCHOPNEUMONIA [None]
  - C-REACTIVE PROTEIN INCREASED [None]
  - DIALYSIS [None]
  - HYPOTHERMIA [None]
  - PERITONITIS [None]
  - SEPSIS [None]
  - WHITE BLOOD CELL COUNT INCREASED [None]
